FAERS Safety Report 12172753 (Version 3)
Quarter: 2016Q1

REPORT INFORMATION
  Report Type: Spontaneous
  Country: NG (occurrence: NG)
  Receive Date: 20160311
  Receipt Date: 20160325
  Transmission Date: 20160526
  Serious: Yes (Death)
  Sender: FDA-Public Use
  Company Number: NG-PFIZER INC-2016147864

PATIENT
  Age: 20 Year
  Sex: Female

DRUGS (5)
  1. ERYTROMYCIN [Concomitant]
     Indication: KLEBSIELLA INFECTION
     Dosage: UNK
     Dates: start: 20160229
  2. TYGACIL [Suspect]
     Active Substance: TIGECYCLINE
     Indication: THERMAL BURN
     Dosage: 50 MG, 2X/DAY
     Route: 042
     Dates: start: 20160302
  3. CLEXANE [Concomitant]
     Active Substance: ENOXAPARIN SODIUM
     Dosage: UNK
  4. TYGACIL [Suspect]
     Active Substance: TIGECYCLINE
     Indication: SEPSIS
  5. MERONEM [Concomitant]
     Active Substance: MEROPENEM
     Dosage: 1 G, UNK
     Dates: start: 20160228, end: 20160302

REACTIONS (5)
  - Sepsis [Fatal]
  - Septic shock [Fatal]
  - Hypoxia [Fatal]
  - Acute kidney injury [Fatal]
  - Dehydration [Fatal]

NARRATIVE: CASE EVENT DATE: 20160304
